FAERS Safety Report 5787602-5 (Version None)
Quarter: 2008Q2

REPORT INFORMATION
  Report Type: 
  Country: None (occurrence: None)
  Receive Date: 20080625
  Receipt Date: 20080619
  Transmission Date: 20081010
  Serious: Yes (Other)
  Sender: FDA-Public Use
  Company Number: DK-MERCK-0806DNK00010

PATIENT

DRUGS (1)
  1. JANUVIA [Suspect]
     Route: 048

REACTIONS (1)
  - PANCREATITIS ACUTE [None]
